FAERS Safety Report 11254747 (Version 1)
Quarter: 2015Q3

REPORT INFORMATION
  Report Type: Spontaneous
  Country: GB (occurrence: GB)
  Receive Date: 20150709
  Receipt Date: 20150709
  Transmission Date: 20151125
  Serious: Yes (Other)
  Sender: FDA-Public Use
  Company Number: GB-PFIZER INC-2015222228

PATIENT
  Sex: Female

DRUGS (4)
  1. NUROFEN [Concomitant]
     Active Substance: IBUPROFEN
     Dosage: UNK
  2. TURMERIC [Concomitant]
     Active Substance: TURMERIC
     Dosage: UNK
  3. PHENYTOIN. [Suspect]
     Active Substance: PHENYTOIN
     Indication: EPILEPSY
     Dosage: 300 MG, 1X/DAY
     Route: 048
     Dates: start: 1961, end: 1998
  4. COD LIVER OIL [Concomitant]
     Active Substance: COD LIVER OIL
     Dosage: UNK

REACTIONS (3)
  - Back pain [Recovered/Resolved]
  - Osteoporosis [Not Recovered/Not Resolved]
  - Spinal compression fracture [Not Recovered/Not Resolved]
